FAERS Safety Report 6886477-0 (Version None)
Quarter: 2010Q3

REPORT INFORMATION
  Report Type: 
  Country: None (occurrence: None)
  Receive Date: 20100730
  Receipt Date: 20100715
  Transmission Date: 20110219
  Serious: Yes (Death)
  Sender: FDA-Public Use
  Company Number: US-PAR PHARMACEUTICAL, INC-2010SCPR001364

PATIENT

DRUGS (1)
  1. MEGACE ES [Suspect]
     Indication: FAILURE TO THRIVE
     Dosage: 5 ML, QD
     Route: 048
     Dates: start: 20100331, end: 20100413

REACTIONS (3)
  - DEATH [None]
  - DISEASE PROGRESSION [None]
  - LUNG CANCER METASTATIC [None]
